FAERS Safety Report 19593331 (Version 1)
Quarter: 2021Q3

REPORT INFORMATION
  Report Type: Spontaneous
  Country: US (occurrence: US)
  Receive Date: 20210722
  Receipt Date: 20210722
  Transmission Date: 20211014
  Serious: Yes (Other)
  Sender: FDA-Public Use
  Company Number: US-STRIDES ARCOLAB LIMITED-2020SP015444

PATIENT
  Age: 50 Year
  Sex: Male

DRUGS (5)
  1. AMANTADINE HYDROCHLORIDE. [Suspect]
     Active Substance: AMANTADINE HYDROCHLORIDE
     Indication: COGNITIVE DISORDER
     Route: 065
  2. METHYLPHENIDATE. [Concomitant]
     Active Substance: METHYLPHENIDATE
     Indication: CONFUSIONAL AROUSAL
     Dosage: UNK
     Route: 065
  3. METHYLPHENIDATE. [Concomitant]
     Active Substance: METHYLPHENIDATE
     Indication: ATTENTION DEFICIT HYPERACTIVITY DISORDER
  4. DONEPEZIL. [Suspect]
     Active Substance: DONEPEZIL
     Indication: CONFABULATION
     Dosage: 5MG
     Route: 065
  5. DONEPEZIL. [Suspect]
     Active Substance: DONEPEZIL
     Dosage: DOSE INCREASED TO 10MG
     Route: 065

REACTIONS (2)
  - Hallucination, visual [Unknown]
  - Off label use [Unknown]
